FAERS Safety Report 23659106 (Version 2)
Quarter: 2024Q2

REPORT INFORMATION
  Report Type: Spontaneous
  Country: US (occurrence: US)
  Receive Date: 20240321
  Receipt Date: 20240502
  Transmission Date: 20240716
  Serious: Yes (Other)
  Sender: FDA-Public Use
  Company Number: US-AMERICAN REGENT INC-2024000941

PATIENT
  Age: 20 Year
  Sex: Male

DRUGS (5)
  1. EPINEPHRINE [Suspect]
     Active Substance: EPINEPHRINE
     Indication: Anaphylactic reaction
     Dosage: UNK; SEVERAL DOSES
     Route: 030
  2. EPINEPHRINE [Suspect]
     Active Substance: EPINEPHRINE
     Dosage: CONTINUOUS INFUSION; MAXIMUM DOSE OF 0.15 MCG/KG/MIN
     Route: 042
  3. METHYLPREDNISOLONE [Suspect]
     Active Substance: METHYLPREDNISOLONE
     Indication: Anaphylactic reaction
     Dosage: UNK
     Route: 042
  4. LORATADINE [Concomitant]
     Active Substance: LORATADINE
     Indication: Anaphylactic reaction
     Dosage: UNK
     Route: 065
  5. PREDNISONE [Concomitant]
     Active Substance: PREDNISONE
     Indication: Anaphylactic reaction
     Dosage: UNK
     Route: 065

REACTIONS (5)
  - Lactic acidosis [Recovered/Resolved]
  - Drug ineffective [Recovered/Resolved]
  - Anaphylactic reaction [Recovered/Resolved]
  - Hypertension [Recovered/Resolved]
  - Off label use [Unknown]
